FAERS Safety Report 23699929 (Version 3)
Quarter: 2025Q3

REPORT INFORMATION
  Report Type: Spontaneous
  Country: JP (occurrence: JP)
  Receive Date: 20240403
  Receipt Date: 20250822
  Transmission Date: 20251021
  Serious: Yes (Life-Threatening, Hospitalization, Other)
  Sender: BRISTOL-MYERS SQUIBB COMPANY
  Company Number: JP-BRISTOL-MYERS SQUIBB COMPANY-2024-049570

PATIENT
  Age: 72 Year
  Sex: Female

DRUGS (8)
  1. YERVOY [Suspect]
     Active Substance: IPILIMUMAB
     Indication: Lung carcinoma cell type unspecified recurrent
     Route: 041
     Dates: start: 20230413, end: 20230413
  2. YERVOY [Suspect]
     Active Substance: IPILIMUMAB
     Route: 041
     Dates: start: 202307, end: 202307
  3. YERVOY [Suspect]
     Active Substance: IPILIMUMAB
     Route: 041
     Dates: start: 202308, end: 202308
  4. OPDIVO [Suspect]
     Active Substance: NIVOLUMAB
     Indication: Lung carcinoma cell type unspecified recurrent
     Dates: start: 20230413, end: 20230413
  5. OPDIVO [Suspect]
     Active Substance: NIVOLUMAB
     Dates: start: 202306, end: 202306
  6. OPDIVO [Suspect]
     Active Substance: NIVOLUMAB
     Dates: start: 202307, end: 202307
  7. OPDIVO [Suspect]
     Active Substance: NIVOLUMAB
     Dates: start: 202308, end: 202308
  8. OPDIVO [Suspect]
     Active Substance: NIVOLUMAB
     Dates: start: 202308, end: 202308

REACTIONS (7)
  - Infusion related reaction [Unknown]
  - Rash [Unknown]
  - Neutrophil count decreased [Unknown]
  - Thyroiditis [Unknown]
  - Silent thyroiditis [Unknown]
  - Pulmonary toxicity [Unknown]
  - Respiratory failure [Unknown]

NARRATIVE: CASE EVENT DATE: 20230401
